FAERS Safety Report 14624684 (Version 1)
Quarter: 2018Q1

REPORT INFORMATION
  Report Type: Spontaneous
  Country: US (occurrence: US)
  Receive Date: 20180312
  Receipt Date: 20180312
  Transmission Date: 20180509
  Serious: Yes (Hospitalization)
  Sender: FDA-Public Use
  Company Number: US-PFIZER INC-2018098038

PATIENT
  Age: 82 Year
  Sex: Male
  Weight: 78.93 kg

DRUGS (1)
  1. XALKORI [Suspect]
     Active Substance: CRIZOTINIB
     Indication: LUNG NEOPLASM MALIGNANT
     Dosage: 250 MG TWICE A DAY
     Route: 048
     Dates: start: 20180208, end: 201802

REACTIONS (5)
  - Peripheral swelling [Recovering/Resolving]
  - Dyspnoea [Unknown]
  - Heart rate decreased [Recovering/Resolving]
  - Dizziness [Unknown]
  - Weight increased [Recovering/Resolving]

NARRATIVE: CASE EVENT DATE: 201802
